FAERS Safety Report 10032998 (Version 1)
Quarter: 2014Q1

REPORT INFORMATION
  Report Type: Spontaneous
  Country: GB (occurrence: GB)
  Receive Date: 20140324
  Receipt Date: 20140324
  Transmission Date: 20141002
  Serious: Yes (Life-Threatening)
  Sender: FDA-Public Use
  Company Number: GB-ASTRAZENECA-2014SE19560

PATIENT
  Age: 18 Year
  Sex: Female
  Weight: 82 kg

DRUGS (7)
  1. DIPRIVAN [Suspect]
     Indication: INDUCTION OF ANAESTHESIA
     Route: 042
     Dates: start: 20121102, end: 20121102
  2. FENTANYL [Suspect]
     Indication: INDUCTION OF ANAESTHESIA
     Route: 042
     Dates: start: 20121102, end: 20121102
  3. NORCURON [Suspect]
     Indication: INDUCTION OF ANAESTHESIA
     Route: 042
     Dates: start: 20121102, end: 20121102
  4. ONDANSETRON [Suspect]
     Indication: INDUCTION OF ANAESTHESIA
     Route: 042
     Dates: start: 20121102, end: 20121102
  5. CONTRACEPTIVE IMPLANT [Concomitant]
     Indication: CONTRACEPTION
  6. OXYGEN [Concomitant]
  7. SEVOFLURANE [Concomitant]

REACTIONS (2)
  - Oxygen saturation decreased [Recovered/Resolved]
  - Bronchospasm [Recovered/Resolved]
